FAERS Safety Report 5489218-7 (Version None)
Quarter: 2007Q4

REPORT INFORMATION
  Report Type: 
  Country: None (occurrence: None)
  Receive Date: 20071016
  Receipt Date: 20071002
  Transmission Date: 20080405
  Serious: Yes (Other)
  Sender: FDA-Public Use
  Company Number: TPA2007A02031

PATIENT
  Age: 63 Year
  Sex: Female
  Weight: 104.3273 kg

DRUGS (4)
  1. ACTOS [Suspect]
     Indication: TYPE 2 DIABETES MELLITUS
     Dosage: 30 MG, 1 IN 1 D, PER ORAL; 30 MG, 1/2 TABLET, 1 IN 1 D, PER ORAL
     Route: 048
     Dates: start: 20060601, end: 20070501
  2. ACTOS [Suspect]
     Indication: TYPE 2 DIABETES MELLITUS
     Dosage: 30 MG, 1 IN 1 D, PER ORAL; 30 MG, 1/2 TABLET, 1 IN 1 D, PER ORAL
     Route: 048
     Dates: start: 20070501, end: 20070613
  3. OXYTROL [Concomitant]
  4. DETROL [Concomitant]

REACTIONS (9)
  - ABDOMINAL INFECTION [None]
  - ABDOMINAL STRANGULATED HERNIA [None]
  - ACCIDENT [None]
  - BLOOD GLUCOSE DECREASED [None]
  - BLOOD GLUCOSE INCREASED [None]
  - DIZZINESS [None]
  - MALAISE [None]
  - SUDDEN ONSET OF SLEEP [None]
  - WEIGHT INCREASED [None]
